FAERS Safety Report 10585651 (Version 1)
Quarter: 2014Q4

REPORT INFORMATION
  Report Type: Report from Study
  Country: HU (occurrence: HU)
  Receive Date: 20141114
  Receipt Date: 20141114
  Transmission Date: 20150529
  Serious: Yes (Life-Threatening, Hospitalization)
  Sender: FDA-Public Use
  Company Number: HU-PFIZER INC-2014312224

PATIENT
  Age: 46 Year
  Sex: Male
  Weight: 200 kg

DRUGS (18)
  1. ACTRAPID [Concomitant]
     Active Substance: INSULIN HUMAN
     Dosage: UNK
     Dates: start: 20120719
  2. KALDYUM [Concomitant]
     Active Substance: POTASSIUM CHLORIDE
     Indication: PROPHYLAXIS
     Dosage: UNK
     Dates: start: 20080416
  3. TENAXUM [Concomitant]
     Active Substance: RILMENIDINE
     Dosage: UNK
     Dates: start: 200711
  4. WARFARIN [Concomitant]
     Active Substance: WARFARIN
     Dosage: UNK
     Dates: start: 20120815
  5. TENOX [Concomitant]
     Dosage: UNK
     Dates: start: 20130627
  6. NARVA [Concomitant]
     Indication: HYPERTENSION
     Dosage: UNK
     Dates: start: 200807
  7. BISOPROLOL [Concomitant]
     Active Substance: BISOPROLOL
     Dosage: UNK
     Dates: start: 20130228
  8. INSULATARD INSULIN [Concomitant]
     Dosage: UNK
     Dates: start: 20120719
  9. MAGNESIUM [Concomitant]
     Active Substance: MAGNESIUM
     Dosage: UNK
     Dates: start: 20080416
  10. FUROSEMID [Concomitant]
     Active Substance: FUROSEMIDE
     Indication: PROPHYLAXIS
     Dosage: UNK
     Dates: start: 20080416
  11. ONBREZ BREEZHALER [Concomitant]
     Active Substance: INDACATEROL
     Dosage: UNK
     Dates: start: 20140125
  12. SEEBRI BREEZHALER [Concomitant]
     Active Substance: GLYCOPYRROLATE
     Dosage: UNK
     Dates: start: 20140125
  13. DALNESSA [Concomitant]
     Dosage: UNK
     Dates: start: 20110928
  14. BOSULIF [Suspect]
     Active Substance: BOSUTINIB MONOHYDRATE
     Indication: LEUKAEMIA
     Dosage: 500 MG, 1X/DAY
     Route: 048
     Dates: start: 20080417, end: 20141107
  15. HYGROTON [Concomitant]
     Active Substance: CHLORTHALIDONE
     Dosage: UNK
     Dates: end: 20130218
  16. MILURIT [Concomitant]
     Active Substance: ALLOPURINOL
     Indication: PROPHYLAXIS
     Dosage: UNK
     Dates: start: 2001
  17. VALSARTAN. [Concomitant]
     Active Substance: VALSARTAN
     Dosage: UNK
     Dates: start: 20130218
  18. APO-FAMOTIDINE [Concomitant]
     Dosage: UNK
     Dates: start: 20130507

REACTIONS (1)
  - Cardiac failure acute [Unknown]

NARRATIVE: CASE EVENT DATE: 20141106
